FAERS Safety Report 20323485 (Version 2)
Quarter: 2022Q3

REPORT INFORMATION
  Report Type: Spontaneous
  Country: US (occurrence: US)
  Receive Date: 20220111
  Receipt Date: 20220901
  Transmission Date: 20221027
  Serious: Yes (Other)
  Sender: FDA-Public Use
  Company Number: US-GILEAD-2022-0564066

PATIENT
  Sex: Male

DRUGS (3)
  1. TRUVADA [Suspect]
     Active Substance: EMTRICITABINE\TENOFOVIR DISOPROXIL FUMARATE
     Indication: HIV infection
     Dosage: UNK
     Route: 048
     Dates: start: 2007, end: 2010
  2. DESCOVY [Concomitant]
     Active Substance: EMTRICITABINE\TENOFOVIR ALAFENAMIDE FUMARATE
  3. ODEFSEY [Concomitant]
     Active Substance: EMTRICITABINE\RILPIVIRINE HYDROCHLORIDE\TENOFOVIR ALAFENAMIDE FUMARATE

REACTIONS (6)
  - Renal failure [Not Recovered/Not Resolved]
  - Bone density decreased [Unknown]
  - Tooth loss [Not Recovered/Not Resolved]
  - Bone loss [Not Recovered/Not Resolved]
  - Bone density abnormal [Not Recovered/Not Resolved]
  - Hernia [Unknown]

NARRATIVE: CASE EVENT DATE: 20200101
